FAERS Safety Report 7970235-X (Version None)
Quarter: 2011Q4

REPORT INFORMATION
  Report Type: 
  Country: None (occurrence: None)
  Receive Date: 20111122
  Receipt Date: 20110721
  Transmission Date: 20120403
  Serious: No
  Sender: FDA-Public Use
  Company Number: PHHY2011US57102

PATIENT
  Sex: Female

DRUGS (1)
  1. GILENYA [Suspect]
     Dosage: 0.5 MG, QD, ORAL
     Route: 048
     Dates: start: 20110202

REACTIONS (1)
  - CONSTIPATION [None]
